FAERS Safety Report 4864296-4 (Version None)
Quarter: 2005Q4

REPORT INFORMATION
  Report Type: 
  Country: None (occurrence: None)
  Receive Date: 20051222
  Receipt Date: 20051005
  Transmission Date: 20060501
  Serious: Yes (Hospitalization, Other)
  Sender: FDA-Public Use
  Company Number: US-MERCK-0510USA03400

PATIENT
  Age: 81 Year
  Sex: Female
  Weight: 68 kg

DRUGS (26)
  1. VIOXX [Suspect]
     Indication: ARTHRITIS
     Route: 048
     Dates: start: 19990101, end: 20040930
  2. XALATAN [Concomitant]
     Route: 065
  3. DIOVAN [Concomitant]
     Route: 065
  4. CLONIDINE [Concomitant]
     Route: 065
  5. COSOPT [Concomitant]
     Route: 065
  6. FUROSEMIDE [Concomitant]
     Route: 065
  7. ACETASOL [Concomitant]
     Route: 065
  8. BETAMETHASONE [Concomitant]
     Route: 065
  9. ACETAMINOPHEN AND PROPOXYPHENE NAPSYLATE [Concomitant]
     Route: 065
  10. ALPHAGAN [Concomitant]
     Route: 065
  11. ALPRAZOLAM [Concomitant]
     Route: 065
  12. MECLIZINE [Concomitant]
     Route: 065
  13. NORVASC [Concomitant]
     Route: 065
  14. BEXTRA [Concomitant]
     Route: 065
  15. PREMPRO [Concomitant]
     Route: 065
  16. NIFEREX [Concomitant]
     Route: 065
  17. PREVACID [Concomitant]
     Route: 065
  18. WARFARIN [Concomitant]
     Route: 065
  19. CARDURA [Concomitant]
     Route: 065
  20. GUANFACINE HYDROCHLORIDE [Concomitant]
     Route: 065
  21. TIMOPTIC [Concomitant]
     Route: 065
  22. ERYTHROMYCIN [Concomitant]
     Route: 065
  23. CEFACLOR [Concomitant]
     Route: 065
  24. DIAZEPAM [Concomitant]
     Route: 065
  25. LUMIGAN [Concomitant]
     Route: 065
  26. DOXAZOSIN MESYLATE [Concomitant]
     Route: 065

REACTIONS (5)
  - BLINDNESS [None]
  - BLOOD PRESSURE INCREASED [None]
  - DISORIENTATION [None]
  - ISCHAEMIC STROKE [None]
  - RASH [None]
